FAERS Safety Report 12647541 (Version 2)
Quarter: 2016Q3

REPORT INFORMATION
  Report Type: Spontaneous
  Country: NL (occurrence: NL)
  Receive Date: 20160812
  Receipt Date: 20160901
  Transmission Date: 20161109
  Serious: Yes (Other)
  Sender: FDA-Public Use
  Company Number: NL-ACTELION-A-CH2016-139818

PATIENT
  Age: 6 Month
  Sex: Male
  Weight: 7.6 kg

DRUGS (3)
  1. TRACLEER [Suspect]
     Active Substance: BOSENTAN
     Indication: PERSISTENT FOETAL CIRCULATION
     Dosage: 12 MG, BID
     Route: 048
     Dates: start: 20160314, end: 20160712
  2. SILDENAFIL. [Concomitant]
     Active Substance: SILDENAFIL
     Indication: PERSISTENT FOETAL CIRCULATION
     Dosage: UNK, TID
     Route: 048
     Dates: start: 201602
  3. OXYGEN. [Concomitant]
     Active Substance: OXYGEN

REACTIONS (3)
  - Neutropenia [Unknown]
  - Autoimmune disorder [Unknown]
  - Thrombocytopenia [Unknown]
